FAERS Safety Report 4837049-0 (Version None)
Quarter: 2005Q4

REPORT INFORMATION
  Report Type: 
  Country: None (occurrence: None)
  Receive Date: 20051121
  Receipt Date: 20051121
  Transmission Date: 20060501
  Serious: Yes (Hospitalization)
  Sender: FDA-Public Use
  Company Number: None

PATIENT
  Sex: Female
  Weight: 57.6 kg

DRUGS (1)
  1. INTERFERON A1B [Suspect]
     Indication: METASTATIC RENAL CELL CARCINOMA
     Dosage: 250 MCG DAILY SC
     Route: 058
     Dates: start: 20050912, end: 20051108

REACTIONS (5)
  - DISEASE PROGRESSION [None]
  - FATIGUE [None]
  - NAUSEA [None]
  - PAIN [None]
  - WEIGHT DECREASED [None]
